FAERS Safety Report 11617305 (Version 2)
Quarter: 2015Q4

REPORT INFORMATION
  Report Type: Report from Study
  Country: US (occurrence: US)
  Receive Date: 20151009
  Receipt Date: 20151204
  Transmission Date: 20160304
  Serious: Yes (Hospitalization)
  Sender: FDA-Public Use
  Company Number: US-JNJFOC-20151006339

PATIENT
  Age: 83 Year
  Sex: Male

DRUGS (12)
  1. ISOSORBIDE. [Concomitant]
     Active Substance: ISOSORBIDE
  2. ASPIRIN. [Concomitant]
     Active Substance: ASPIRIN
  3. CLOPIDOGREL [Concomitant]
     Active Substance: CLOPIDOGREL BISULFATE
  4. VITAMIN D [Concomitant]
     Active Substance: CHOLECALCIFEROL
  5. OCUVITE NOS [Concomitant]
  6. IMBRUVICA [Suspect]
     Active Substance: IBRUTINIB
     Indication: WALDENSTROM^S MACROGLOBULINAEMIA
     Route: 048
     Dates: start: 20150605
  7. POTASSIUM [Concomitant]
     Active Substance: POTASSIUM
  8. HYDROCHLOROTHIAZIDE. [Concomitant]
     Active Substance: HYDROCHLOROTHIAZIDE
  9. ATORVASTATIN [Concomitant]
     Active Substance: ATORVASTATIN
  10. IMBRUVICA [Suspect]
     Active Substance: IBRUTINIB
     Indication: WALDENSTROM^S MACROGLOBULINAEMIA
     Route: 048
  11. LISINOPRIL. [Concomitant]
     Active Substance: LISINOPRIL
  12. TOPROL XL [Concomitant]
     Active Substance: METOPROLOL SUCCINATE

REACTIONS (3)
  - Herpes zoster [Recovering/Resolving]
  - Myocardial infarction [Unknown]
  - Blood iron abnormal [Unknown]

NARRATIVE: CASE EVENT DATE: 20150916
